FAERS Safety Report 20759047 (Version 1)
Quarter: 2022Q2

REPORT INFORMATION
  Report Type: Spontaneous
  Country: None (occurrence: US)
  Receive Date: 20220427
  Receipt Date: 20220427
  Transmission Date: 20220721
  Serious: No
  Sender: FDA-Public Use
  Company Number: US-Mission Pharmacal Company-2128214

PATIENT
  Age: 43 Year
  Sex: Female

DRUGS (3)
  1. THIOLA EC [Suspect]
     Active Substance: TIOPRONIN
     Indication: Cystinuria
     Route: 048
     Dates: start: 20210304
  2. VIMPAT [Concomitant]
     Active Substance: LACOSAMIDE
  3. CORTEF [Concomitant]
     Active Substance: HYDROCORTISONE

REACTIONS (3)
  - Seizure [Unknown]
  - Hypoglycaemia [Unknown]
  - Syncope [Unknown]

NARRATIVE: CASE EVENT DATE: 20220228
